FAERS Safety Report 16999701 (Version 1)
Quarter: 2019Q4

REPORT INFORMATION
  Report Type: Spontaneous
  Country: US (occurrence: US)
  Receive Date: 20191105
  Receipt Date: 20191105
  Transmission Date: 20200122
  Serious: Yes (Hospitalization)
  Sender: FDA-Public Use
  Company Number: None

PATIENT
  Age: 42 Year
  Sex: Male
  Weight: 60.3 kg

DRUGS (9)
  1. APIXABAN 5 MG [Concomitant]
     Active Substance: APIXABAN
     Dates: start: 20190410
  2. ONDANSETRON. [Concomitant]
     Active Substance: ONDANSETRON
     Dates: start: 20190904
  3. CYANOCOBALAMIN 1000 MCG [Concomitant]
     Active Substance: CYANOCOBALAMIN
     Dates: start: 20190904
  4. BENAZEPRIL 5 MG [Concomitant]
     Dates: start: 20190815
  5. ROSUVASTATIN 20 MG [Concomitant]
     Dates: start: 20190429
  6. FENOFIBRATE 150 MG [Concomitant]
     Dates: start: 20190410
  7. FOLIC ACID 1 MG [Concomitant]
     Dates: start: 20190904
  8. LORLATINIB [Suspect]
     Active Substance: LORLATINIB
     Indication: NON-SMALL CELL LUNG CANCER
     Route: 048
     Dates: start: 20160106, end: 20190918
  9. DEXAMETHASONE 4 MG [Concomitant]
     Active Substance: DEXAMETHASONE
     Dates: start: 20190904

REACTIONS (3)
  - Haemoptysis [None]
  - Pneumonitis [None]
  - Respiratory failure [None]

NARRATIVE: CASE EVENT DATE: 20190918
